FAERS Safety Report 10172512 (Version 5)
Quarter: 2015Q2

REPORT INFORMATION
  Report Type: Report from Study
  Country: US (occurrence: US)
  Receive Date: 20140515
  Receipt Date: 20150615
  Transmission Date: 20150821
  Serious: Yes (Death, Hospitalization, Disabling)
  Sender: FDA-Public Use
  Company Number: US-SA-2014SA060242

PATIENT
  Age: 59 Year
  Sex: Female

DRUGS (1)
  1. AUBAGIO [Suspect]
     Active Substance: TERIFLUNOMIDE
     Indication: MULTIPLE SCLEROSIS
     Route: 048
     Dates: start: 20131228, end: 20150606

REACTIONS (9)
  - Memory impairment [Unknown]
  - Limb injury [Unknown]
  - Speech disorder [Unknown]
  - Hypokinesia [Recovering/Resolving]
  - Muscular weakness [Unknown]
  - Fall [Unknown]
  - Multiple sclerosis [Unknown]
  - Unevaluable event [Unknown]
  - Death [Fatal]

NARRATIVE: CASE EVENT DATE: 20150606
